FAERS Safety Report 6061996-8 (Version None)
Quarter: 2009Q1

REPORT INFORMATION
  Report Type: 
  Country: None (occurrence: None)
  Receive Date: 20090202
  Receipt Date: 20090127
  Transmission Date: 20090719
  Serious: No
  Sender: FDA-Public Use
  Company Number: US-B.I. PHARMACEUTICALS,INC./RIDGEFIELD-2009-BP-00263BP

PATIENT
  Age: 65 Year
  Sex: Female

DRUGS (16)
  1. MIRAPEX [Suspect]
     Indication: RESTLESS LEGS SYNDROME
     Dosage: 3MG
     Route: 048
     Dates: start: 20081201, end: 20081201
  2. LIPITOR [Concomitant]
     Indication: BLOOD CHOLESTEROL INCREASED
  3. LISINOPRIL [Concomitant]
     Indication: HYPERTENSION
  4. GABAPENTIN [Concomitant]
  5. TRAZODONE HCL [Concomitant]
  6. SIMVASTATIN [Concomitant]
  7. OXYBUTYN [Concomitant]
  8. CYMBALTA [Concomitant]
  9. BUPROPION HCL [Concomitant]
  10. ASPIRIN [Concomitant]
  11. COSOPT [Concomitant]
  12. PREDNISOLONE [Concomitant]
  13. TRAVATAN [Concomitant]
  14. ALPHAGAN P [Concomitant]
  15. ASMANEX TWISTHALER [Concomitant]
  16. SPIRIVA [Concomitant]

REACTIONS (5)
  - BALANCE DISORDER [None]
  - FALL [None]
  - HALLUCINATION [None]
  - INCORRECT DOSE ADMINISTERED [None]
  - SLEEP DISORDER [None]
